FAERS Safety Report 23870473 (Version 1)
Quarter: 2024Q2

REPORT INFORMATION
  Report Type: Spontaneous
  Country: CH (occurrence: CH)
  Receive Date: 20240518
  Receipt Date: 20240518
  Transmission Date: 20240716
  Serious: Yes (Death, Other)
  Sender: FDA-Public Use
  Company Number: CH-ABBVIE-5762277

PATIENT

DRUGS (1)
  1. LEUPROLIDE ACETATE [Suspect]
     Active Substance: ISOPROPYL ALCOHOL\LEUPROLIDE ACETATE
     Indication: Product used for unknown indication
     Route: 058

REACTIONS (49)
  - Sudden cardiac death [Fatal]
  - Cardiovascular disorder [Unknown]
  - Constipation [Unknown]
  - Epistaxis [Unknown]
  - Thrombophlebitis [Unknown]
  - Arrhythmia [Unknown]
  - Restlessness [Unknown]
  - Haemoptysis [Unknown]
  - Confusional state [Unknown]
  - Sleep disorder [Unknown]
  - Thinking abnormal [Unknown]
  - Gastritis [Unknown]
  - Ventricular extrasystoles [Unknown]
  - Pollakiuria [Unknown]
  - Asthma [Unknown]
  - Respiratory disorder [Unknown]
  - Tremor [Unknown]
  - Flatulence [Unknown]
  - Type IV hypersensitivity reaction [Unknown]
  - Breast pain [Unknown]
  - Cardiac failure [Unknown]
  - Vomiting [Unknown]
  - Depression [Unknown]
  - Cough [Unknown]
  - Diarrhoea [Unknown]
  - Hypoaesthesia [Unknown]
  - Dyspnoea [Unknown]
  - Angina pectoris [Unknown]
  - Disease risk factor [Unknown]
  - Emphysema [Unknown]
  - Dysuria [Unknown]
  - Pulmonary oedema [Unknown]
  - Dry mouth [Unknown]
  - Hypertension [Unknown]
  - Paraesthesia [Unknown]
  - Somnolence [Unknown]
  - Metabolic disorder [Unknown]
  - Musculoskeletal disorder [Unknown]
  - Breast discomfort [Unknown]
  - Anxiety [Unknown]
  - Myocardial ischaemia [Unknown]
  - Nocturia [Unknown]
  - Hallucination [Unknown]
  - Suicidal behaviour [Unknown]
  - Tachycardia [Unknown]
  - Syncope [Unknown]
  - Hostility [Unknown]
  - Lymphoedema [Unknown]
  - Haematuria [Unknown]
